FAERS Safety Report 6260107-3 (Version None)
Quarter: 2009Q3

REPORT INFORMATION
  Report Type: 
  Country: None (occurrence: None)
  Receive Date: 20090708
  Receipt Date: 20090630
  Transmission Date: 20100115
  Serious: Yes (Hospitalization)
  Sender: FDA-Public Use
  Company Number: JP-ROCHE-641828

PATIENT
  Sex: Female
  Weight: 58.8 kg

DRUGS (13)
  1. KYTRIL [Suspect]
     Indication: DRUG USE FOR UNKNOWN INDICATION
     Route: 048
     Dates: start: 20090617, end: 20090619
  2. BEVACIZUMAB [Suspect]
     Indication: COLON CANCER
     Route: 041
     Dates: start: 20090616, end: 20090616
  3. ELPLAT [Suspect]
     Indication: COLON CANCER
     Route: 041
     Dates: start: 20090616, end: 20090616
  4. FLUOROURACIL [Suspect]
     Indication: COLON CANCER
     Dosage: ROUTE: INTRAVENOUS BOLUS
     Route: 042
     Dates: start: 20090616, end: 20090616
  5. FLUOROURACIL [Suspect]
     Dosage: ROUTE: INTRAVENOUS DRIP
     Route: 042
     Dates: start: 20090616, end: 20090618
  6. LEVOFOLINATE [Suspect]
     Indication: COLON CANCER
     Dosage: DRUG: LEVOFOLINATE CALCIUM
     Route: 041
     Dates: start: 20090616, end: 20090616
  7. DECADRON [Suspect]
     Indication: PROPHYLAXIS OF NAUSEA AND VOMITING
     Route: 048
     Dates: start: 20090617, end: 20090619
  8. PURSENNID [Suspect]
     Indication: CONSTIPATION
     Dosage: NOTE: TAKEN AS NEEDED
     Route: 065
     Dates: start: 20090619
  9. LOXONIN [Concomitant]
     Dosage: NOTE: TAKEN AS NEEDED
     Route: 048
     Dates: start: 20090604
  10. OMEPRAZOLE [Concomitant]
     Route: 048
     Dates: start: 20090604
  11. BLOPRESS [Concomitant]
     Route: 048
     Dates: start: 20090608
  12. MAGNESIUM OXIDE [Concomitant]
     Route: 048
     Dates: start: 20090609
  13. AMLODIPINE [Concomitant]
     Dosage: DRUG: AMLODIN OD
     Route: 048
     Dates: start: 20090612

REACTIONS (1)
  - COLITIS ISCHAEMIC [None]
